FAERS Safety Report 23463399 (Version 1)
Quarter: 2024Q1

REPORT INFORMATION
  Report Type: Spontaneous
  Country: CN (occurrence: CN)
  Receive Date: 20240131
  Receipt Date: 20240131
  Transmission Date: 20240410
  Serious: Yes (Hospitalization, Other)
  Sender: FDA-Public Use
  Company Number: CN-009507513-2401CHN015293

PATIENT
  Age: 60 Year
  Sex: Female
  Weight: 55 kg

DRUGS (2)
  1. STEGLATRO [Suspect]
     Active Substance: ERTUGLIFLOZIN PIDOLATE
     Indication: Symptomatic treatment
     Dosage: 5 MILLIGRAM, QD
     Route: 048
     Dates: start: 20231123, end: 20231231
  2. METFORMIN [Concomitant]
     Active Substance: METFORMIN HYDROCHLORIDE
     Indication: Blood glucose abnormal
     Dosage: 500 MILLIGRAM, BID
     Dates: start: 20231123

REACTIONS (12)
  - Pneumonia [Unknown]
  - Pyrexia [Unknown]
  - Wheezing [Unknown]
  - Diabetic ketoacidosis [Recovering/Resolving]
  - Diabetic vascular disorder [Unknown]
  - Diabetic nephropathy [Unknown]
  - Hyperuricaemia [Unknown]
  - Intervertebral disc protrusion [Unknown]
  - Uterine leiomyoma [Unknown]
  - Osteoporosis [Unknown]
  - Chronic gastritis [Unknown]
  - Hypertriglyceridaemia [Unknown]

NARRATIVE: CASE EVENT DATE: 20240101
